FAERS Safety Report 4624461-8 (Version None)
Quarter: 2005Q1

REPORT INFORMATION
  Report Type: 
  Country: None (occurrence: None)
  Receive Date: 20050107
  Receipt Date: 20041018
  Transmission Date: 20050727
  Serious: No
  Sender: FDA-Public Use
  Company Number: 235869K04USA

PATIENT
  Age: 55 Year
  Sex: Female

DRUGS (2)
  1. REBIF [Suspect]
     Indication: MULTIPLE SCLEROSIS
     Dosage: 22 MCG, 3 IN 1 WEEKS, SUBCUTANEOUS
     Route: 058
     Dates: start: 20040922, end: 20041202
  2. .. [Concomitant]

REACTIONS (9)
  - ALOPECIA [None]
  - BACK PAIN [None]
  - DIARRHOEA [None]
  - DYSAESTHESIA [None]
  - HEADACHE [None]
  - HYPERSENSITIVITY [None]
  - INJECTION SITE REACTION [None]
  - TREMOR [None]
  - URTICARIA [None]
